FAERS Safety Report 9708742 (Version 1)
Quarter: 2013Q4

REPORT INFORMATION
  Report Type: Spontaneous
  Country: US (occurrence: US)
  Receive Date: 20131125
  Receipt Date: 20131125
  Transmission Date: 20140711
  Serious: Yes (Hospitalization)
  Sender: FDA-Public Use
  Company Number: US-GLAXOSMITHKLINE-A1051133A

PATIENT
  Age: 53 Year
  Sex: Female

DRUGS (1)
  1. PROMACTA [Suspect]
     Indication: ILL-DEFINED DISORDER
     Dosage: 50MG UNKNOWN

REACTIONS (1)
  - Investigation [Not Recovered/Not Resolved]
